FAERS Safety Report 7691554-0 (Version None)
Quarter: 2011Q3

REPORT INFORMATION
  Report Type: 
  Country: None (occurrence: None)
  Receive Date: 20110818
  Receipt Date: 20110818
  Transmission Date: 20111222
  Serious: Yes (Other)
  Sender: FDA-Public Use
  Company Number: US-PFIZER INC-2011189780

PATIENT
  Sex: Male
  Weight: 86 kg

DRUGS (1)
  1. EPLERENONE [Suspect]
     Dosage: 25 MG, QOD
     Route: 048
     Dates: start: 20110624, end: 20110701

REACTIONS (3)
  - HAEMATURIA [None]
  - SYNCOPE [None]
  - HYPOGLYCAEMIA [None]
